FAERS Safety Report 6003939-9 (Version None)
Quarter: 2008Q4

REPORT INFORMATION
  Report Type: 
  Country: None (occurrence: None)
  Receive Date: 20081216
  Receipt Date: 20081209
  Transmission Date: 20090506
  Serious: Yes (Other)
  Sender: FDA-Public Use
  Company Number: AU-BRISTOL-MYERS SQUIBB COMPANY-14137616

PATIENT
  Sex: Female

DRUGS (3)
  1. ORENCIA [Suspect]
  2. TEGRETOL [Concomitant]
  3. LAMICTAL [Concomitant]

REACTIONS (1)
  - CONVULSION [None]
